FAERS Safety Report 5752803-9 (Version None)
Quarter: 2008Q2

REPORT INFORMATION
  Report Type: 
  Country: None (occurrence: None)
  Receive Date: 20080529
  Receipt Date: 20080523
  Transmission Date: 20081010
  Serious: Yes (Other)
  Sender: FDA-Public Use
  Company Number: GB-PFIZER INC-2008042962

PATIENT
  Sex: Female

DRUGS (2)
  1. ISTIN [Suspect]
     Indication: BLOOD PRESSURE
     Route: 048
  2. CHEMOTHERAPY NOS [Suspect]

REACTIONS (3)
  - FEELING ABNORMAL [None]
  - NEOPLASM MALIGNANT [None]
  - RASH [None]
